FAERS Safety Report 6442152-8 (Version None)
Quarter: 2009Q4

REPORT INFORMATION
  Report Type: 
  Country: None (occurrence: None)
  Receive Date: 20091116
  Receipt Date: 20091110
  Transmission Date: 20100525
  Serious: Yes (Death, Hospitalization, Other)
  Sender: FDA-Public Use
  Company Number: PHHY2008BR03837

PATIENT
  Age: 80 Year
  Sex: Female
  Weight: 44 kg

DRUGS (17)
  1. EXELON [Suspect]
     Indication: DEMENTIA ALZHEIMER'S TYPE
     Dosage: 1.5 MG, BID
     Route: 048
     Dates: start: 20030101
  2. EXELON [Suspect]
     Dosage: 4 MG, BID
     Route: 048
  3. EXELON [Suspect]
     Dosage: 6 MG, BID
     Route: 048
  4. EXELON [Suspect]
     Dosage: 1.5 MG, QID
     Route: 048
     Dates: start: 20080314, end: 20080320
  5. EXELON [Suspect]
     Dosage: 6 MG, BID
     Route: 048
     Dates: start: 20080324
  6. EXELON [Suspect]
     Dosage: 6 MG
  7. SEROQUEL [Concomitant]
     Indication: HALLUCINATION
     Dosage: 75 MG, BID
     Route: 048
  8. SEROQUEL [Concomitant]
     Dosage: 100 MG, BID
     Route: 048
  9. IMIPRAMINE [Concomitant]
     Indication: MAJOR DEPRESSION
     Dosage: 1 TABLET DAILY
     Route: 048
  10. SERTRALINE HCL [Concomitant]
     Indication: INSOMNIA
     Dosage: 50 MG, QD (AT NIGHT)
     Route: 048
  11. OSCAL [Concomitant]
     Indication: OSTEOPOROSIS
     Dosage: 600 MG, 1TABLET AT LUNCH, QD
     Route: 048
  12. ALENDRONATE SODIUM [Concomitant]
     Indication: OSTEOPOROSIS
     Dosage: 1 TABLET EVERY 7 DAYS
  13. PROLOPA [Concomitant]
     Indication: PARKINSON'S DISEASE
     Dosage: 200/50 MG, BID
     Route: 048
     Dates: start: 20050801
  14. PROLOPA [Concomitant]
     Dosage: 100/25 MG, 4 TABLETS PER DAY
     Route: 048
  15. MEMANTINE HCL [Concomitant]
  16. NOOTROPIL [Concomitant]
     Indication: MEMORY IMPAIRMENT
     Dosage: 800 MG, QD
     Dates: start: 20070101
  17. MACRODANTIN [Concomitant]
     Indication: URINARY TRACT INFECTION
     Dosage: 100 MG/ ONCE DAILY
     Dates: start: 20080801

REACTIONS (13)
  - APATHY [None]
  - BLOOD PRESSURE DECREASED [None]
  - CEREBROVASCULAR ACCIDENT [None]
  - COMA [None]
  - CONFUSIONAL STATE [None]
  - DECREASED APPETITE [None]
  - DIARRHOEA [None]
  - FALL [None]
  - FEMUR FRACTURE [None]
  - GENERAL PHYSICAL HEALTH DETERIORATION [None]
  - PNEUMONIA ASPIRATION [None]
  - SOMNOLENCE [None]
  - SURGERY [None]
